FAERS Safety Report 21256163 (Version 5)
Quarter: 2022Q4

REPORT INFORMATION
  Report Type: Report from Study
  Country: AU (occurrence: AU)
  Receive Date: 20220825
  Receipt Date: 20221111
  Transmission Date: 20230113
  Serious: Yes (Hospitalization, Other)
  Sender: FDA-Public Use
  Company Number: AU-BRISTOL-MYERS SQUIBB COMPANY-2022-093353

PATIENT
  Age: 69 Year
  Sex: Male
  Weight: 84 kg

DRUGS (6)
  1. THYROXINE [Concomitant]
     Active Substance: LEVOTHYROXINE
     Indication: Product used for unknown indication
     Dosage: DOSAGE: 137.5 UNITS
     Route: 048
     Dates: start: 20220512, end: 20220804
  2. THYROXINE [Concomitant]
     Active Substance: LEVOTHYROXINE
     Dosage: DOSAGE: 150 UNITS
     Route: 048
     Dates: start: 20220805
  3. ACETAMINOPHEN [Concomitant]
     Active Substance: ACETAMINOPHEN
     Indication: Blister
     Route: 048
     Dates: start: 2019
  4. FISH OIL [Concomitant]
     Active Substance: FISH OIL
     Indication: Product used for unknown indication
     Dosage: DOSAGE= 10000 UNITS
     Route: 048
     Dates: start: 2020
  5. NICORETTE [Concomitant]
     Active Substance: NICOTINE
     Indication: Product used for unknown indication
     Route: 048
     Dates: start: 2020
  6. PILOCARPINE EYE DROPS [Concomitant]
     Indication: Product used for unknown indication
     Dosage: DOSAGE= 1 OTHER (UNITS NOS)
     Route: 048
     Dates: start: 20220804, end: 20220818

REACTIONS (1)
  - Glossitis [Recovering/Resolving]

NARRATIVE: CASE EVENT DATE: 20220818
